FAERS Safety Report 8164016-4 (Version None)
Quarter: 2012Q1

REPORT INFORMATION
  Report Type: 
  Country: None (occurrence: None)
  Receive Date: 20120224
  Receipt Date: 20120216
  Transmission Date: 20120608
  Serious: Yes (Hospitalization, Other)
  Sender: FDA-Public Use
  Company Number: JP-JNJFOC-20110905002

PATIENT
  Sex: Female
  Weight: 46 kg

DRUGS (20)
  1. PAXIL [Concomitant]
     Indication: PANIC DISORDER
     Route: 048
     Dates: start: 20010101, end: 20110901
  2. BROMOCRIPTINE MESYLATE [Concomitant]
     Indication: PANIC DISORDER
     Route: 048
     Dates: start: 20100101, end: 20110826
  3. CLONAZEPAM [Concomitant]
     Indication: PANIC DISORDER
     Route: 048
     Dates: start: 20100101, end: 20110826
  4. DIAZEPAM [Concomitant]
     Indication: PARKINSONISM
     Route: 048
     Dates: start: 20110915, end: 20110922
  5. ETHYL LOFLAZEPATE [Concomitant]
     Indication: PANIC DISORDER
     Route: 048
     Dates: start: 20100101, end: 20110826
  6. TRIHEXYPHENIDYL HCL [Concomitant]
     Route: 048
     Dates: start: 20100101, end: 20110826
  7. AKINETON [Concomitant]
     Route: 030
     Dates: start: 20110909, end: 20110911
  8. LENDORMIN D [Concomitant]
     Indication: PARKINSONISM
     Route: 048
     Dates: start: 20110905, end: 20110922
  9. MOSAPRIDE CITRATE [Concomitant]
     Indication: PANIC DISORDER
     Route: 048
     Dates: start: 20100101, end: 20110826
  10. BROMPERIDOL [Concomitant]
     Indication: PANIC DISORDER
     Route: 048
     Dates: start: 20100101, end: 20110826
  11. UNKNOWN MEDICATION [Concomitant]
     Indication: PANIC DISORDER
     Route: 048
     Dates: start: 20100101, end: 20110826
  12. TRIHEXYPHENIDYL HCL [Concomitant]
     Indication: PARKINSONISM
     Route: 048
     Dates: start: 20110915
  13. AMOXAPINE [Concomitant]
     Indication: PANIC DISORDER
     Route: 048
     Dates: start: 20100101, end: 20110826
  14. RISPERDAL CONSTA [Suspect]
     Indication: PANIC DISORDER
     Route: 030
     Dates: start: 20110701, end: 20110812
  15. CAFFEINE [Concomitant]
     Indication: PANIC DISORDER
     Route: 048
     Dates: start: 20100101, end: 20110826
  16. DIASTASE NATURAL AGENTS [Concomitant]
     Indication: PANIC DISORDER
     Route: 048
     Dates: start: 20100101, end: 20110826
  17. ALPRAZOLAM [Concomitant]
     Indication: PANIC DISORDER
     Route: 048
     Dates: start: 20110826, end: 20110901
  18. TRIHEXYPHENIDYL HCL [Concomitant]
     Indication: PANIC DISORDER
     Route: 048
     Dates: start: 20110915
  19. TRIHEXYPHENIDYL HCL [Concomitant]
     Route: 048
     Dates: start: 20100101, end: 20110826
  20. AKINETON [Concomitant]
     Indication: PARKINSONISM
     Route: 030
     Dates: start: 20110901, end: 20110901

REACTIONS (8)
  - GALACTORRHOEA [None]
  - PERSECUTORY DELUSION [None]
  - OFF LABEL USE [None]
  - HYPERPROLACTINAEMIA [None]
  - DIZZINESS [None]
  - PARKINSONISM [None]
  - HYPOAESTHESIA [None]
  - LOSS OF CONSCIOUSNESS [None]
